FAERS Safety Report 9379411 (Version 2)
Quarter: 2013Q4

REPORT INFORMATION
  Report Type: Report from Study
  Country: CA (occurrence: CA)
  Receive Date: 20130702
  Receipt Date: 20131001
  Transmission Date: 20140711
  Serious: Yes (Hospitalization)
  Sender: FDA-Public Use
  Company Number: CA-UCBSA-090569

PATIENT
  Age: 64 Year
  Sex: Male
  Weight: 117.5 kg

DRUGS (12)
  1. CERTOLIZUMAB PEGOL [Suspect]
     Indication: RHEUMATOID ARTHRITIS
     Route: 058
     Dates: start: 20130122, end: 20130219
  2. CERTOLIZUMAB PEGOL [Suspect]
     Indication: RHEUMATOID ARTHRITIS
     Route: 058
     Dates: start: 20130305, end: 20130626
  3. METHOTREXATE [Concomitant]
     Indication: RHEUMATOID ARTHRITIS
     Route: 048
     Dates: start: 20130123, end: 20130130
  4. METHOTREXATE [Concomitant]
     Indication: RHEUMATOID ARTHRITIS
     Route: 048
     Dates: start: 20130206, end: 20130213
  5. METHOTREXATE [Concomitant]
     Indication: RHEUMATOID ARTHRITIS
     Route: 048
     Dates: start: 20130220, end: 20130227
  6. METHOTREXATE [Concomitant]
     Indication: RHEUMATOID ARTHRITIS
     Route: 048
     Dates: start: 20130306, end: 20130611
  7. VITAMIN B12 [Concomitant]
     Indication: ANAEMIA
     Route: 048
     Dates: start: 201211
  8. EFFEXOR [Concomitant]
     Indication: DEPRESSION
     Route: 048
     Dates: start: 2004
  9. ADVIL [Concomitant]
     Indication: ARTHRALGIA
     Dosage: 200-400 MG
     Route: 048
     Dates: start: 201212, end: 20130305
  10. FOLIC ACID [Concomitant]
     Indication: PROPHYLAXIS
     Route: 048
     Dates: start: 20130123, end: 20130612
  11. AERIUS [Concomitant]
     Indication: EYE SWELLING
     Dosage: 1 TAB
     Route: 048
     Dates: start: 20130223, end: 20130223
  12. DEPO MEDROL [Concomitant]
     Indication: SYNOVITIS
     Dosage: ONCE
     Dates: start: 20130416, end: 20130416

REACTIONS (1)
  - Interstitial lung disease [Recovered/Resolved]
